FAERS Safety Report 22357440 (Version 1)
Quarter: 2023Q2

REPORT INFORMATION
  Report Type: Report from Study
  Country: US (occurrence: US)
  Receive Date: 20230524
  Receipt Date: 20230524
  Transmission Date: 20230721
  Serious: Yes (Death, Hospitalization)
  Sender: FDA-Public Use
  Company Number: US-ABBVIE-5176725

PATIENT
  Sex: Male
  Weight: 40.823 kg

DRUGS (5)
  1. CREON [Suspect]
     Active Substance: PANCRELIPASE AMYLASE\PANCRELIPASE LIPASE\PANCRELIPASE PROTEASE
     Indication: Pancreatic carcinoma
     Dosage: STRENGTH: 36000 UNIT, 5 CAPS EVERY MEALS; 2 EVERY SNACK
     Route: 048
     Dates: start: 201910, end: 20230520
  2. LOVASTATIN [Concomitant]
     Active Substance: LOVASTATIN
     Indication: Blood cholesterol
  3. ZETIA [Concomitant]
     Active Substance: EZETIMIBE
     Indication: Blood cholesterol
  4. ASPIRIN [Concomitant]
     Active Substance: ASPIRIN
     Indication: Transient ischaemic attack
  5. IRON [Concomitant]
     Active Substance: IRON
     Indication: Anaemia

REACTIONS (2)
  - Pancreatic carcinoma metastatic [Fatal]
  - Laboratory test abnormal [Unknown]
